FAERS Safety Report 9843949 (Version 1)
Quarter: 2013Q4

REPORT INFORMATION
  Report Type: Spontaneous
  Country: US (occurrence: None)
  Receive Date: 20131223
  Receipt Date: 20131223
  Transmission Date: 20140711
  Serious: No
  Sender: FDA-Public Use
  Company Number: 1000049730

PATIENT
  Age: 58 Year
  Sex: Female

DRUGS (3)
  1. LINZESS (LINACLOTIDE) (145 MICROGRAM, CAPSULES) [Suspect]
     Indication: IRRITABLE BOWEL SYNDROME
     Dosage: 145 MCG (145 MCG, 1 IN 1 D), ORAL
     Route: 048
     Dates: start: 20131005, end: 20131012
  2. CARTIA XT (DILTIAZEM HYDROCHLORIDE) (DILTIAZEM) HYDROCHLORIDE) [Concomitant]
  3. PREMARIN (ESTROGENS CONJUGATED) (ESTROGENS CONJUGATED) [Concomitant]

REACTIONS (3)
  - Diarrhoea [None]
  - Vulvovaginal swelling [None]
  - Vulvovaginal dryness [None]
